FAERS Safety Report 9817204 (Version 2)
Quarter: 2018Q1

REPORT INFORMATION
  Report Type: Report from Study
  Country: ZA (occurrence: ZA)
  Receive Date: 20140114
  Receipt Date: 20180213
  Transmission Date: 20180509
  Serious: Yes (Death)
  Sender: FDA-Public Use
  Company Number: ZA-ROCHE-1333504

PATIENT
  Age: 70 Year
  Sex: Female

DRUGS (2)
  1. FERRIMED (FOLIC ACID/IRON POLYMALTOSE) [Concomitant]
  2. MIRCERA [Suspect]
     Active Substance: METHOXY POLYETHYLENE GLYCOL-EPOETIN BETA
     Indication: NEPHROGENIC ANAEMIA
     Route: 058
     Dates: start: 20120905

REACTIONS (1)
  - Death [Fatal]

NARRATIVE: CASE EVENT DATE: 201308
